FAERS Safety Report 6969527-2 (Version None)
Quarter: 2010Q3

REPORT INFORMATION
  Report Type: 
  Country: None (occurrence: None)
  Receive Date: 20100907
  Receipt Date: 20100907
  Transmission Date: 20110219
  Serious: Yes (Hospitalization)
  Sender: FDA-Public Use
  Company Number: None

PATIENT
  Age: 58 Year
  Sex: Female
  Weight: 90.9 kg

DRUGS (1)
  1. VANCOMYCIN HCL [Suspect]

REACTIONS (1)
  - RENAL FAILURE ACUTE [None]
